FAERS Safety Report 5924522-7 (Version None)
Quarter: 2008Q4

REPORT INFORMATION
  Report Type: 
  Country: None (occurrence: None)
  Receive Date: 20081020
  Receipt Date: 20081014
  Transmission Date: 20090506
  Serious: Yes (Death, Hospitalization)
  Sender: FDA-Public Use
  Company Number: US-ELI_LILLY_AND_COMPANY-US200810003333

PATIENT
  Sex: Female
  Weight: 59.864 kg

DRUGS (2)
  1. ZYPREXA [Suspect]
     Dosage: 25 MG, UNK
     Dates: start: 19981006
  2. ZYPREXA [Suspect]
     Dosage: 50 MG, UNK
     Dates: end: 20011020

REACTIONS (5)
  - DEATH [None]
  - DIABETES MELLITUS [None]
  - HEART INJURY [None]
  - HYPERTENSION [None]
  - OVERDOSE [None]
